FAERS Safety Report 24420324 (Version 3)
Quarter: 2024Q4

REPORT INFORMATION
  Report Type: Spontaneous
  Country: JP (occurrence: JP)
  Receive Date: 20241010
  Receipt Date: 20241107
  Transmission Date: 20250114
  Serious: Yes (Death, Hospitalization)
  Sender: JOHNSON AND JOHNSON
  Company Number: JP-JNJFOC-20240752334

PATIENT
  Age: 65 Year
  Sex: Female

DRUGS (10)
  1. YONDELIS [Suspect]
     Active Substance: TRABECTEDIN
     Indication: Leiomyosarcoma recurrent
     Dosage: 1ST CYCLE
     Route: 041
     Dates: start: 20240325
  2. YONDELIS [Suspect]
     Active Substance: TRABECTEDIN
     Dosage: 4TH CYCLE
     Route: 041
     Dates: start: 20240531
  3. YONDELIS [Suspect]
     Active Substance: TRABECTEDIN
     Dosage: 5TH CYCLE
     Route: 041
     Dates: start: 20240621
  4. VONOPRAZAN FUMARATE [Concomitant]
     Active Substance: VONOPRAZAN FUMARATE
  5. ACETAMINOPHEN\TRAMADOL HYDROCHLORIDE [Concomitant]
     Active Substance: ACETAMINOPHEN\TRAMADOL HYDROCHLORIDE
  6. JANUVIA [Concomitant]
     Active Substance: SITAGLIPTIN PHOSPHATE
  7. SPIRONOLACTONE [Concomitant]
     Active Substance: SPIRONOLACTONE
  8. RAMELTEON [Concomitant]
     Active Substance: RAMELTEON
  9. BELSOMRA [Concomitant]
     Active Substance: SUVOREXANT
  10. JANUVIA [Concomitant]
     Active Substance: SITAGLIPTIN PHOSPHATE

REACTIONS (4)
  - Rhabdomyolysis [Fatal]
  - Infection [Fatal]
  - Peptic ulcer [Fatal]
  - Pancreatitis [Fatal]

NARRATIVE: CASE EVENT DATE: 20240630
